FAERS Safety Report 13538508 (Version 1)
Quarter: 2017Q2

REPORT INFORMATION
  Report Type: Report from Study
  Country: CA (occurrence: CA)
  Receive Date: 20170512
  Receipt Date: 20170512
  Transmission Date: 20170830
  Serious: Yes (Hospitalization)
  Sender: FDA-Public Use
  Company Number: CA-ROCHE-1931759

PATIENT
  Age: 81 Year
  Sex: Female

DRUGS (5)
  1. ACTEMRA [Suspect]
     Active Substance: TOCILIZUMAB
     Indication: TEMPORAL ARTERITIS
  2. ATENOLOL. [Concomitant]
     Active Substance: ATENOLOL
  3. COSOPT [Concomitant]
     Active Substance: DORZOLAMIDE HYDROCHLORIDE\TIMOLOL MALEATE
  4. PREDNISONE. [Concomitant]
     Active Substance: PREDNISONE
  5. ACTEMRA [Suspect]
     Active Substance: TOCILIZUMAB
     Indication: POLYMYALGIA RHEUMATICA
     Route: 042
     Dates: start: 20170424

REACTIONS (1)
  - Gastrointestinal haemorrhage [Unknown]

NARRATIVE: CASE EVENT DATE: 20170504
